FAERS Safety Report 14574283 (Version 1)
Quarter: 2018Q1

REPORT INFORMATION
  Report Type: Spontaneous
  Country: US (occurrence: US)
  Receive Date: 20180226
  Receipt Date: 20180226
  Transmission Date: 20180509
  Serious: No
  Sender: FDA-Public Use
  Company Number: US-BIOMARINAP-US-2018-117192

PATIENT
  Sex: Male
  Weight: 9 kg

DRUGS (1)
  1. VIMIZIM [Suspect]
     Active Substance: ELOSULFASE ALFA
     Indication: PRODUCT USED FOR UNKNOWN INDICATION
     Dosage: UNK
     Route: 042
     Dates: start: 20161230

REACTIONS (5)
  - Drug administration error [Unknown]
  - Pyrexia [Unknown]
  - Underdose [Unknown]
  - Chills [Unknown]
  - Rash morbilliform [Unknown]
